FAERS Safety Report 6866996-3 (Version None)
Quarter: 2010Q3

REPORT INFORMATION
  Report Type: 
  Country: None (occurrence: None)
  Receive Date: 20100722
  Receipt Date: 20100719
  Transmission Date: 20110219
  Serious: Yes (Other)
  Sender: FDA-Public Use
  Company Number: ES-ROCHE-716213

PATIENT
  Sex: Female

DRUGS (2)
  1. AVASTIN [Suspect]
     Indication: BREAST CANCER
     Route: 065
  2. TAXOL [Suspect]
     Indication: BREAST CANCER
     Route: 065

REACTIONS (1)
  - NAIL TOXICITY [None]
